FAERS Safety Report 10527749 (Version 2)
Quarter: 2014Q4

REPORT INFORMATION
  Report Type: Spontaneous
  Country: JP (occurrence: None)
  Receive Date: 20141016
  Receipt Date: 20141027
  Transmission Date: 20150528
  Serious: Yes (Hospitalization)
  Sender: FDA-Public Use
  Company Number: 2014-003015

PATIENT
  Age: 70 Year
  Sex: Female

DRUGS (5)
  1. CALCIUM LACTATE (CALCIUM LACTATE) [Concomitant]
     Active Substance: CALCIUM LACTATE
  2. MOHRUS (KETOPROFEN) [Concomitant]
  3. FLUMETHOLON (FLUOROMETHOLONE) [Concomitant]
  4. SYMBICORT [Concomitant]
     Active Substance: BUDESONIDE\FORMOTEROL FUMARATE DIHYDRATE
  5. ACTONEL [Suspect]
     Active Substance: RISEDRONATE SODIUM
     Indication: OSTEOPOROSIS
     Route: 048
     Dates: start: 20140711, end: 20141003

REACTIONS (5)
  - Scratch [None]
  - Dizziness [None]
  - Fall [None]
  - Constipation [None]
  - Hyperammonaemia [None]

NARRATIVE: CASE EVENT DATE: 20141003
